FAERS Safety Report 20614110 (Version 1)
Quarter: 2022Q1

REPORT INFORMATION
  Report Type: Spontaneous
  Country: US (occurrence: US)
  Receive Date: 20220320
  Receipt Date: 20220320
  Transmission Date: 20220423
  Serious: No
  Sender: FDA-Public Use
  Company Number: US-SANOFI-01010750

PATIENT
  Age: 86 Year
  Sex: Female

DRUGS (4)
  1. SELSUN BLUE MOISTURIZING [Suspect]
     Active Substance: SELENIUM SULFIDE
     Indication: Dry skin
     Dosage: UNK
     Dates: start: 20220308
  2. SELSUN BLUE MOISTURIZING [Suspect]
     Active Substance: SELENIUM SULFIDE
     Indication: Pruritus
  3. SELSUN BLUE ITCHY DRY SCALP [Concomitant]
     Active Substance: PYRITHIONE ZINC
     Indication: Dry skin
     Dosage: UNK
  4. SELSUN BLUE ITCHY DRY SCALP [Concomitant]
     Active Substance: PYRITHIONE ZINC
     Indication: Pruritus

REACTIONS (1)
  - Hair colour changes [Unknown]

NARRATIVE: CASE EVENT DATE: 20220301
